FAERS Safety Report 17436585 (Version 8)
Quarter: 2020Q2

REPORT INFORMATION
  Report Type: Spontaneous
  Country: US (occurrence: US)
  Receive Date: 20200219
  Receipt Date: 20200619
  Transmission Date: 20200713
  Serious: Yes (Other)
  Sender: FDA-Public Use
  Company Number: NVSC2020US041028

PATIENT
  Age: 71 Year
  Sex: Female

DRUGS (5)
  1. BEOVU [Suspect]
     Active Substance: BROLUCIZUMAB-DBLL
     Indication: NEOVASCULAR AGE-RELATED MACULAR DEGENERATION
     Dosage: 6 MG, ONCE/SINGLE (INJECTION)
     Route: 047
     Dates: start: 20200109, end: 20200109
  2. PREDNISONE. [Concomitant]
     Active Substance: PREDNISONE
     Indication: PRODUCT USED FOR UNKNOWN INDICATION
     Dosage: 60 MG (FOR 1WK, THEN PLANS TO TAPER OVER 2-3WKS)
     Route: 048
  3. HCTZ [Concomitant]
     Active Substance: HYDROCHLOROTHIAZIDE
     Indication: HYPERTENSION
     Dosage: UNK
     Route: 065
  4. DUREZOL [Suspect]
     Active Substance: DIFLUPREDNATE
     Indication: PRODUCT USED FOR UNKNOWN INDICATION
     Dosage: UNK
     Route: 065
     Dates: start: 20200206
  5. LOSARTAN. [Concomitant]
     Active Substance: LOSARTAN
     Indication: HYPERTENSION
     Dosage: UNK
     Route: 065

REACTIONS (9)
  - Retinal vascular occlusion [Recovering/Resolving]
  - Retinal ischaemia [Recovering/Resolving]
  - Conjunctival haemorrhage [Recovering/Resolving]
  - Vitreous floaters [Recovering/Resolving]
  - Non-infectious endophthalmitis [Recovering/Resolving]
  - Retinal vasculitis [Recovered/Resolved]
  - Vision blurred [Recovering/Resolving]
  - Ocular hyperaemia [Recovering/Resolving]
  - Vitreous disorder [Recovering/Resolving]

NARRATIVE: CASE EVENT DATE: 20200206
